FAERS Safety Report 7197585-1 (Version None)
Quarter: 2010Q4

REPORT INFORMATION
  Report Type: 
  Country: None (occurrence: None)
  Receive Date: 20101213
  Receipt Date: 20101203
  Transmission Date: 20110411
  Serious: Yes (Death, Hospitalization, Other)
  Sender: FDA-Public Use
  Company Number: 019985

PATIENT
  Sex: Female
  Weight: 64 kg

DRUGS (7)
  1. ROTIGOTINE (ROTIGOTINE) [Suspect]
     Indication: PARKINSON'S DISEASE
     Dosage: 4 MG QD TRANSDERMAL
     Route: 062
     Dates: start: 20100721, end: 20100901
  2. VIREGYT-K (VIREGYT) [Suspect]
     Indication: PARKINSON'S DISEASE
     Dosage: 100 MG BID
     Dates: start: 20051004, end: 20100901
  3. ROMPARKIN (ROMPARKIN) (NOT SPECIFIED) [Suspect]
     Dosage: 2 MG TID
     Dates: start: 19970901
  4. PIRACETAM [Concomitant]
  5. STUGERON [Concomitant]
  6. STILNOX [Concomitant]
  7. REQUIP [Concomitant]

REACTIONS (3)
  - CARDIOPULMONARY FAILURE [None]
  - HYPERTENSION [None]
  - PYELONEPHRITIS [None]
